FAERS Safety Report 4295202-1 (Version None)
Quarter: 2004Q1

REPORT INFORMATION
  Report Type: 
  Country: None (occurrence: None)
  Receive Date: 20040213
  Receipt Date: 20040127
  Transmission Date: 20041129
  Serious: Yes (Hospitalization, Other)
  Sender: FDA-Public Use
  Company Number: 177529

PATIENT
  Sex: Male
  Weight: 102.0593 kg

DRUGS (9)
  1. AVONEX [Suspect]
     Indication: MULTIPLE SCLEROSIS
     Dosage: 30 MCG QW IM
     Route: 030
     Dates: start: 20000101, end: 20010501
  2. AVONEX [Suspect]
     Indication: MULTIPLE SCLEROSIS
     Dosage: 30 MCG QW IM
     Route: 030
     Dates: start: 20020801, end: 20031001
  3. AVONEX [Suspect]
     Indication: MULTIPLE SCLEROSIS
     Dosage: 30 MCG QW IM
     Route: 030
     Dates: start: 20031001
  4. PREVACID [Concomitant]
  5. CLONAZEPAM [Concomitant]
  6. NEURONTIN [Concomitant]
  7. DEPAKOTE [Concomitant]
  8. TRAZODONE HCL [Concomitant]
  9. VICODIN [Concomitant]

REACTIONS (14)
  - CARDIOMEGALY [None]
  - CHILLS [None]
  - DEEP VEIN THROMBOSIS [None]
  - FATIGUE [None]
  - INFLUENZA LIKE ILLNESS [None]
  - INJECTION SITE HAEMORRHAGE [None]
  - INJECTION SITE REACTION [None]
  - INSOMNIA [None]
  - MYALGIA [None]
  - PAIN [None]
  - PLEURAL FIBROSIS [None]
  - PNEUMONIA MYCOPLASMAL [None]
  - PYREXIA [None]
  - VENOUS INJURY [None]
